FAERS Safety Report 5649963-7 (Version None)
Quarter: 2008Q1

REPORT INFORMATION
  Report Type: 
  Country: None (occurrence: None)
  Receive Date: 20080304
  Receipt Date: 20080226
  Transmission Date: 20080703
  Serious: No
  Sender: FDA-Public Use
  Company Number: JP-BAXTER-2008BH001557

PATIENT
  Age: 78 Year
  Sex: Female

DRUGS (5)
  1. BUMINATE 5% [Suspect]
     Indication: SURGERY
     Route: 065
     Dates: start: 20070212, end: 20070212
  2. BUMINATE 5% [Suspect]
     Route: 065
     Dates: start: 20070227, end: 20070227
  3. BUMINATE 5% [Suspect]
     Route: 065
     Dates: start: 20070227, end: 20070227
  4. ALBUMINAR-25 [Suspect]
     Indication: SURGERY
     Dosage: DOSE UNIT:UNKNOWN
     Route: 065
     Dates: start: 20070227, end: 20070227
  5. ALBUMINAR-25 [Suspect]
     Dosage: DOSE UNIT:UNKNOWN
     Route: 065
     Dates: start: 20070212, end: 20070212

REACTIONS (1)
  - HEPATITIS C POSITIVE [None]
